FAERS Safety Report 6961647-1 (Version None)
Quarter: 2010Q3

REPORT INFORMATION
  Report Type: 
  Country: None (occurrence: None)
  Receive Date: 20100901
  Receipt Date: 20100819
  Transmission Date: 20110219
  Serious: Yes (Hospitalization)
  Sender: FDA-Public Use
  Company Number: US-ELI_LILLY_AND_COMPANY-US201008005970

PATIENT
  Sex: Male
  Weight: 83.6 kg

DRUGS (18)
  1. PEMETREXED [Suspect]
     Indication: NON-SMALL CELL LUNG CANCER
     Dosage: 500 MG/M2 (1005MG), ONCE EVERY 21 DAYS
     Route: 042
     Dates: start: 20100622
  2. GEMCITABINE HCL [Suspect]
     Indication: NON-SMALL CELL LUNG CANCER
     Dosage: 1250 MG/M2 (2512MG), ON DAY 1 AND 8 EVERY 21 DAYS
     Route: 042
     Dates: start: 20100622
  3. MAGNESIUM OXIDE [Concomitant]
  4. POTASSIUM GLUCONATE TAB [Concomitant]
  5. ESTER-C [Concomitant]
  6. DILTIAZEM [Concomitant]
  7. LASIX [Concomitant]
  8. FOSINOPRIL SODIUM [Concomitant]
  9. METOPROLOL TARTRATE [Concomitant]
  10. OMEPRAZOLE [Concomitant]
  11. ALPRAZOLAM [Concomitant]
  12. CENTRUM SILVER [Concomitant]
  13. VITAMIN D3 [Concomitant]
  14. GLUCOSAMINE/CHONDROITIN            /01625901/ [Concomitant]
  15. ADVIL LIQUI-GELS [Concomitant]
  16. LOVAZA [Concomitant]
  17. GARLIC [Concomitant]
  18. ASPIRIN [Concomitant]

REACTIONS (3)
  - HAEMOGLOBIN DECREASED [None]
  - MUSCULAR WEAKNESS [None]
  - PYREXIA [None]
